FAERS Safety Report 4625202-0 (Version None)
Quarter: 2005Q2

REPORT INFORMATION
  Report Type: 
  Country: None (occurrence: None)
  Receive Date: 20050401
  Receipt Date: 20040520
  Transmission Date: 20051028
  Serious: Yes (Disabling)
  Sender: FDA-Public Use
  Company Number: US-ROCHE-368594

PATIENT
  Age: 45 Year
  Sex: Male

DRUGS (3)
  1. PEGASYS [Suspect]
     Indication: HEPATITIS C
     Route: 058
     Dates: start: 20040426, end: 20040520
  2. PEGASYS [Suspect]
     Route: 058
     Dates: start: 20041015, end: 20041015
  3. REBETOL [Suspect]
     Indication: DRUG USE FOR UNKNOWN INDICATION
     Route: 048
     Dates: start: 20040426, end: 20040520

REACTIONS (5)
  - LOWER RESPIRATORY TRACT INFECTION [None]
  - NEUTROPHIL COUNT DECREASED [None]
  - PHARYNGITIS STREPTOCOCCAL [None]
  - VOCAL CORD PARALYSIS [None]
  - WHITE BLOOD CELL COUNT DECREASED [None]
